FAERS Safety Report 8548394-X (Version None)
Quarter: 2012Q3

REPORT INFORMATION
  Report Type: 
  Country: None (occurrence: None)
  Receive Date: 20120730
  Receipt Date: 20120719
  Transmission Date: 20120928
  Serious: Yes (Other)
  Sender: FDA-Public Use
  Company Number: AU-JNJFOC-20120711063

PATIENT

DRUGS (3)
  1. DULOXETIME HYDROCHLORIDE [Suspect]
     Indication: FOETAL EXPOSURE DURING PREGNANCY
     Route: 064
  2. CONCERTA [Suspect]
     Indication: FOETAL EXPOSURE DURING PREGNANCY
     Route: 064
  3. SERTRALINE HYDROCHLORIDE [Suspect]
     Indication: FOETAL EXPOSURE DURING PREGNANCY
     Route: 064

REACTIONS (1)
  - PREMATURE BABY [None]
